FAERS Safety Report 4415893-1 (Version None)
Quarter: 2004Q3

REPORT INFORMATION
  Report Type: 
  Country: None (occurrence: None)
  Receive Date: 20040805
  Receipt Date: 20040506
  Transmission Date: 20050211
  Serious: No
  Sender: FDA-Public Use
  Company Number: US-GLAXOSMITHKLINE-A0509830A

PATIENT
  Age: 49 Year
  Sex: Female

DRUGS (6)
  1. AVANDAMET [Suspect]
     Dosage: 1MG FOUR TIMES PER DAY
     Route: 048
     Dates: start: 20031101
  2. GLUCOPHAGE [Concomitant]
  3. ELAVIL [Concomitant]
  4. RISPERDAL [Concomitant]
  5. ZOLOFT [Concomitant]
  6. BLOOD PRESSURE MED [Concomitant]

REACTIONS (1)
  - FATIGUE [None]
